FAERS Safety Report 21030482 (Version 3)
Quarter: 2022Q3

REPORT INFORMATION
  Report Type: Spontaneous
  Country: DE (occurrence: DE)
  Receive Date: 20220701
  Receipt Date: 20220801
  Transmission Date: 20221026
  Serious: Yes (Hospitalization, Other)
  Sender: FDA-Public Use
  Company Number: DE-MYLANLABS-2021M1039397

PATIENT
  Sex: Male
  Weight: 80 kg

DRUGS (98)
  1. CETIRIZINE HYDROCHLORIDE [Suspect]
     Active Substance: CETIRIZINE HYDROCHLORIDE
     Indication: Product use in unapproved indication
     Dosage: UNK, QD 0-0-1
     Route: 065
     Dates: start: 20201018
  2. CETIRIZINE HYDROCHLORIDE [Suspect]
     Active Substance: CETIRIZINE HYDROCHLORIDE
     Dosage: UNK, QD 0-0-1
     Route: 065
     Dates: start: 20201017
  3. CETIRIZINE HYDROCHLORIDE [Suspect]
     Active Substance: CETIRIZINE HYDROCHLORIDE
     Dosage: UNK, QD 0-0-1
     Route: 065
     Dates: start: 20201019
  4. CETIRIZINE HYDROCHLORIDE [Suspect]
     Active Substance: CETIRIZINE HYDROCHLORIDE
     Dosage: UNK, QD 0-0-1
     Route: 065
     Dates: start: 20201016
  5. CETIRIZINE HYDROCHLORIDE [Suspect]
     Active Substance: CETIRIZINE HYDROCHLORIDE
     Dosage: UNK, QD 0-0-1
     Route: 065
     Dates: start: 20201020
  6. CETIRIZINE HYDROCHLORIDE [Suspect]
     Active Substance: CETIRIZINE HYDROCHLORIDE
     Dosage: UNK, QD 0-0-1
     Route: 065
     Dates: start: 20201021
  7. FOLIC ACID [Suspect]
     Active Substance: FOLIC ACID
     Indication: Product used for unknown indication
     Dosage: UNK, QD 1-0-0
     Route: 065
     Dates: start: 20201019
  8. VALERIAN [Suspect]
     Active Substance: VALERIAN
     Indication: Product used for unknown indication
     Dosage: UNK
     Route: 065
     Dates: start: 20201018
  9. VALERIAN [Suspect]
     Active Substance: VALERIAN
     Dosage: UNK
     Route: 065
     Dates: start: 20201017
  10. ATORVASTATIN [Suspect]
     Active Substance: ATORVASTATIN
     Indication: Product used for unknown indication
     Dosage: UNK UNK, QD 0-0-1
     Route: 065
     Dates: start: 20201017
  11. ATORVASTATIN [Suspect]
     Active Substance: ATORVASTATIN
     Dosage: UNK, QD 0-0-1
     Route: 065
     Dates: start: 20180102
  12. ATORVASTATIN [Suspect]
     Active Substance: ATORVASTATIN
     Dosage: UNK UNK, QD 0-0-1
     Route: 065
     Dates: start: 20201021
  13. ATORVASTATIN [Suspect]
     Active Substance: ATORVASTATIN
     Dosage: UNK UNK, QD 0-0-1
     Route: 065
     Dates: start: 20201016
  14. ATORVASTATIN [Suspect]
     Active Substance: ATORVASTATIN
     Dosage: UNK UNK, QD 0-0-1
     Route: 065
     Dates: start: 20201020
  15. ATORVASTATIN [Suspect]
     Active Substance: ATORVASTATIN
     Dosage: UNK UNK, QD 0-0-1
     Route: 065
     Dates: start: 20201019
  16. ATORVASTATIN [Suspect]
     Active Substance: ATORVASTATIN
     Dosage: UNK UNK, QD 0-0-1
     Route: 065
     Dates: start: 20201018
  17. ASPIRIN [Suspect]
     Active Substance: ASPIRIN
     Indication: Product used for unknown indication
     Dosage: UNK, QD 1-0-0
     Route: 065
     Dates: start: 20180102, end: 20180118
  18. ASPIRIN [Suspect]
     Active Substance: ASPIRIN
     Dosage: UNK, QD 1-0-0
     Route: 065
     Dates: start: 20190911
  19. SPIRONOLACTONE [Suspect]
     Active Substance: SPIRONOLACTONE
     Indication: Product used for unknown indication
     Dosage: UNK
     Route: 065
     Dates: end: 20201016
  20. ZOPICLONE [Suspect]
     Active Substance: ZOPICLONE
     Indication: Product used for unknown indication
     Dosage: UNK, QD 0-0-1
     Route: 065
     Dates: start: 20180110, end: 20180116
  21. XARELTO [Suspect]
     Active Substance: RIVAROXABAN
     Indication: Product used for unknown indication
     Dosage: UNK (1-0-0)
     Route: 065
     Dates: end: 20201016
  22. XARELTO [Suspect]
     Active Substance: RIVAROXABAN
     Dosage: 1-0-0
     Route: 065
     Dates: start: 20190910, end: 20190912
  23. XARELTO [Suspect]
     Active Substance: RIVAROXABAN
     Dosage: 1-0-0
     Route: 065
     Dates: start: 20190914, end: 20190919
  24. VALSARTAN [Suspect]
     Active Substance: VALSARTAN
     Indication: Hypertension
     Dosage: 320 MILLIGRAM
     Route: 048
  25. VALSARTAN [Suspect]
     Active Substance: VALSARTAN
     Dosage: UNK (0.5-0-0:MIN DOSE FREQUENCY AND 1-0-0: MAX DOSE FREQUENCY)
     Route: 065
     Dates: start: 20180102, end: 20180118
  26. VALSARTAN [Suspect]
     Active Substance: VALSARTAN
     Dosage: UNK, QD 1-0-0
     Route: 065
     Dates: start: 20201018
  27. VALSARTAN [Suspect]
     Active Substance: VALSARTAN
     Dosage: UNK UNK, QD 1-0-0
     Route: 065
     Dates: start: 20201016
  28. VALSARTAN [Suspect]
     Active Substance: VALSARTAN
     Dosage: UNK, QD 1-0-0
     Route: 065
     Dates: start: 20201020
  29. VALSARTAN [Suspect]
     Active Substance: VALSARTAN
     Dosage: UNK, QD 1-0-0
     Route: 065
     Dates: start: 20201019
  30. VALSARTAN [Suspect]
     Active Substance: VALSARTAN
     Dosage: UNK, QD 1-0-0
     Route: 065
     Dates: start: 20201017
  31. VALSARTAN [Suspect]
     Active Substance: VALSARTAN
     Dosage: UNK, QD 1-0-0
     Route: 065
     Dates: start: 20201021
  32. VALSARTAN [Suspect]
     Active Substance: VALSARTAN
     Dosage: 8 MILLIGRAM, QD
     Route: 048
     Dates: start: 20190915
  33. VALSARTAN [Suspect]
     Active Substance: VALSARTAN
     Dosage: 100 MILLIGRAM, QD
     Route: 048
     Dates: start: 20190910
  34. VALSARTAN [Suspect]
     Active Substance: VALSARTAN
     Dosage: UNK, QD 1-0-0
     Route: 065
     Dates: start: 20201019
  35. VALSARTAN [Suspect]
     Active Substance: VALSARTAN
     Dosage: UNK, QD 1-0-0
     Route: 065
     Dates: start: 20201018
  36. VALSARTAN [Suspect]
     Active Substance: VALSARTAN
     Dosage: UNK UNK, QD 1-0-0
     Route: 065
     Dates: start: 20201016
  37. VALSARTAN [Suspect]
     Active Substance: VALSARTAN
     Dosage: UNK, QD 1-0-0
     Route: 065
     Dates: start: 20201020
  38. VALSARTAN [Suspect]
     Active Substance: VALSARTAN
     Dosage: UNK, QD 1-0-0
     Route: 065
     Dates: start: 20201017
  39. VALSARTAN [Suspect]
     Active Substance: VALSARTAN
     Dosage: UNK, QD 1-0-0
     Route: 065
     Dates: start: 20201021
  40. VALSARTAN [Suspect]
     Active Substance: VALSARTAN
     Dosage: UNK, QD 1-0-0
     Route: 065
     Dates: start: 20201017
  41. BISOPROLOL [Suspect]
     Active Substance: BISOPROLOL
     Indication: Product used for unknown indication
     Dosage: UNK, QD 0-0-1
     Route: 065
     Dates: start: 20201021
  42. BISOPROLOL [Suspect]
     Active Substance: BISOPROLOL
     Dosage: UNK, QD 0-0-1
     Route: 065
     Dates: start: 20201020
  43. BISOPROLOL [Suspect]
     Active Substance: BISOPROLOL
     Dosage: UNK, QD 0-0-1
     Route: 065
     Dates: start: 20201017
  44. BISOPROLOL [Suspect]
     Active Substance: BISOPROLOL
     Dosage: UNK, QD 0-0-1
     Route: 065
     Dates: start: 20201019
  45. BISOPROLOL [Suspect]
     Active Substance: BISOPROLOL
     Dosage: UNK 0.5-0-0
     Route: 065
     Dates: start: 20180102, end: 20180118
  46. BISOPROLOL [Suspect]
     Active Substance: BISOPROLOL
     Dosage: UNK UNK, QD 0-0-1
     Route: 065
     Dates: start: 20201016
  47. BISOPROLOL [Suspect]
     Active Substance: BISOPROLOL
     Dosage: UNK, QD 0-0-1
     Route: 065
     Dates: start: 20201018
  48. FERROUS GLYCINE SULFATE [Suspect]
     Active Substance: FERROUS GLYCINE SULFATE
     Indication: Product used for unknown indication
     Dosage: UNK, QD 0-1-0
     Route: 065
     Dates: start: 20180110, end: 20180117
  49. VALSARTAN [Suspect]
     Active Substance: VALSARTAN
     Indication: Hypertension
     Dosage: 320 MILLIGRAM, QD (MORNING)
     Route: 065
     Dates: start: 20170614
  50. VALSARTAN [Suspect]
     Active Substance: VALSARTAN
     Dosage: 320 MILLIGRAM, QD (MORNING)
     Route: 065
     Dates: start: 20170303
  51. VALSARTAN [Suspect]
     Active Substance: VALSARTAN
     Dosage: 320 MILLIGRAM, QD (MORNING)
     Route: 065
     Dates: start: 20160716
  52. VALSARTAN [Suspect]
     Active Substance: VALSARTAN
     Dosage: 320 MILLIGRAM, QD (MORNING)
     Route: 065
     Dates: start: 20160419
  53. VALSARTAN [Suspect]
     Active Substance: VALSARTAN
     Dosage: 320 MILLIGRAM, QD (MORNING)
     Route: 065
     Dates: start: 20170914
  54. VALSARTAN [Suspect]
     Active Substance: VALSARTAN
     Dosage: 320 MILLIGRAM, QD (MORNING)
     Route: 065
     Dates: start: 20171103
  55. VALSARTAN [Suspect]
     Active Substance: VALSARTAN
     Dosage: 320 MILLIGRAM, QD (MORNING)
     Route: 065
     Dates: start: 20161103
  56. ALLOPURINOL [Suspect]
     Active Substance: ALLOPURINOL
     Indication: Product used for unknown indication
     Dosage: UNK 0.5-0-0
     Route: 065
     Dates: start: 20201017
  57. ALLOPURINOL [Suspect]
     Active Substance: ALLOPURINOL
     Dosage: UNK 0.5-0-0
     Route: 065
     Dates: start: 20201018
  58. ALLOPURINOL [Suspect]
     Active Substance: ALLOPURINOL
     Dosage: UNK  0.5-0-0
     Route: 065
     Dates: start: 20201016
  59. ALLOPURINOL [Suspect]
     Active Substance: ALLOPURINOL
     Dosage: UNK 0.5-0-0
     Route: 065
     Dates: start: 20201019
  60. ALLOPURINOL [Suspect]
     Active Substance: ALLOPURINOL
     Dosage: UNK 0.5-0-0
     Route: 065
     Dates: start: 20201020
  61. ALLOPURINOL [Suspect]
     Active Substance: ALLOPURINOL
     Dosage: UNK  1-0-0
     Route: 065
     Dates: start: 20180102, end: 20180118
  62. ALLOPURINOL [Suspect]
     Active Substance: ALLOPURINOL
     Dosage: UNK 0.5-0-0
     Route: 065
     Dates: start: 20201021
  63. ALLOPURINOL [Suspect]
     Active Substance: ALLOPURINOL
     Dosage: UNK 0.5-0-0
     Route: 065
     Dates: start: 20201019
  64. ALLOPURINOL [Suspect]
     Active Substance: ALLOPURINOL
     Dosage: UNK 1/2-0-0
     Route: 065
     Dates: start: 20190910, end: 20190914
  65. ALLOPURINOL [Suspect]
     Active Substance: ALLOPURINOL
     Dosage: UNK 1/2-0-0
     Route: 065
     Dates: start: 20190917, end: 20190919
  66. ALLOPURINOL [Suspect]
     Active Substance: ALLOPURINOL
     Dosage: UNK 1/2-0-1
     Route: 065
     Dates: start: 20190915, end: 20190916
  67. TORSEMIDE [Suspect]
     Active Substance: TORSEMIDE
     Indication: Product used for unknown indication
     Dosage: UNK, QD 1-0-0
     Route: 065
     Dates: start: 20201018
  68. TORSEMIDE [Suspect]
     Active Substance: TORSEMIDE
     Dosage: UNK, QD 1-0-0
     Route: 065
     Dates: start: 20201019
  69. TORSEMIDE [Suspect]
     Active Substance: TORSEMIDE
     Dosage: UNK, QD 1-0-0
     Route: 065
     Dates: start: 20201016
  70. TORSEMIDE [Suspect]
     Active Substance: TORSEMIDE
     Dosage: UNK, QD 1-0-0
     Route: 065
     Dates: start: 20201020
  71. TORSEMIDE [Suspect]
     Active Substance: TORSEMIDE
     Dosage: UNK, QD 1-0-0
     Route: 065
     Dates: start: 20180110, end: 20180118
  72. TORSEMIDE [Suspect]
     Active Substance: TORSEMIDE
     Dosage: UNK, QD 1-0-0
     Route: 065
     Dates: start: 20201021
  73. TORSEMIDE [Suspect]
     Active Substance: TORSEMIDE
     Dosage: UNK, QD 1-0-0
     Route: 065
     Dates: start: 20201017
  74. RANEXA [Suspect]
     Active Substance: RANOLAZINE
     Indication: Product used for unknown indication
     Dosage: UNK, BID 1-0-1
     Route: 065
     Dates: start: 20180102, end: 20180118
  75. AMLODIPINE BESYLATE [Suspect]
     Active Substance: AMLODIPINE BESYLATE
     Indication: Product used for unknown indication
     Dosage: UNK, BID (1-0-1) PAUSE
     Route: 065
     Dates: start: 20180102, end: 20180110
  76. AMLODIPINE BESYLATE [Suspect]
     Active Substance: AMLODIPINE BESYLATE
     Dosage: 1/2-0-1
     Route: 065
     Dates: start: 20190910, end: 20190916
  77. AMLODIPINE BESYLATE [Suspect]
     Active Substance: AMLODIPINE BESYLATE
     Dosage: 0-0-1
     Route: 065
     Dates: start: 20190917, end: 20190919
  78. PANTOPRAZOLE [Suspect]
     Active Substance: PANTOPRAZOLE
     Indication: Product used for unknown indication
     Dosage: UNK, QD 1-0-0
     Route: 065
     Dates: start: 20201018
  79. PANTOPRAZOLE [Suspect]
     Active Substance: PANTOPRAZOLE
     Dosage: UNK, QD
     Route: 065
     Dates: start: 20201021
  80. PANTOPRAZOLE [Suspect]
     Active Substance: PANTOPRAZOLE
     Dosage: UNK, QD
     Route: 065
     Dates: start: 20201019
  81. PANTOPRAZOLE [Suspect]
     Active Substance: PANTOPRAZOLE
     Dosage: UNK, QD
     Route: 065
     Dates: start: 20201020
  82. PANTOPRAZOLE [Suspect]
     Active Substance: PANTOPRAZOLE
     Dosage: UNK, QD 0-0-1  40
     Route: 065
     Dates: start: 20180110, end: 20180117
  83. PANTOPRAZOLE [Suspect]
     Active Substance: PANTOPRAZOLE
     Dosage: UNK, QD 1-0-0
     Route: 065
     Dates: start: 20201016
  84. PANTOPRAZOLE [Suspect]
     Active Substance: PANTOPRAZOLE
     Dosage: UNK, QD 1-0-0
     Route: 065
     Dates: start: 20201017
  85. PANTOPRAZOLE [Suspect]
     Active Substance: PANTOPRAZOLE
     Dosage: 1-0
     Route: 065
     Dates: start: 20190918, end: 20190919
  86. BISOPROLOL [Concomitant]
     Active Substance: BISOPROLOL
     Indication: Product used for unknown indication
     Dosage: 1/2-0-1
     Route: 065
     Dates: start: 20190910, end: 20190919
  87. KALINOR-RETARD P [Concomitant]
     Indication: Product used for unknown indication
     Dosage: 1-0-1
     Route: 065
     Dates: start: 20190916, end: 20190919
  88. RANEXA [Concomitant]
     Active Substance: RANOLAZINE
     Indication: Product used for unknown indication
     Dosage: 2-0-2
     Route: 065
     Dates: start: 20190916, end: 20190919
  89. RANEXA [Concomitant]
     Active Substance: RANOLAZINE
     Route: 065
     Dates: start: 20190910, end: 20190915
  90. CANDESARTAN [Concomitant]
     Active Substance: CANDESARTAN
     Indication: Product used for unknown indication
     Dosage: 1-0-0
     Route: 065
     Dates: start: 20190917, end: 20190919
  91. FOLIC ACID [Concomitant]
     Active Substance: FOLIC ACID
     Indication: Product used for unknown indication
     Dosage: 1-0-0
     Route: 065
     Dates: start: 20190917, end: 20190919
  92. FUROSEMIDE [Concomitant]
     Active Substance: FUROSEMIDE
     Indication: Product used for unknown indication
     Dosage: 40-40-0 MG, INTRAVENOUS USE
     Route: 042
     Dates: start: 20190910, end: 20190916
  93. FUROSEMIDE [Concomitant]
     Active Substance: FUROSEMIDE
     Dosage: 1-1/2-0
     Route: 065
     Dates: start: 20190917, end: 20190919
  94. FOLIC ACID [Concomitant]
     Active Substance: FOLIC ACID
     Indication: Product used for unknown indication
     Dosage: 1-0-0
     Route: 065
     Dates: start: 20190910, end: 20190916
  95. MELPERONE [Concomitant]
     Active Substance: MELPERONE
     Indication: Product used for unknown indication
     Dosage: 0-0-0-1
     Route: 065
     Dates: start: 20190910, end: 20190916
  96. MELPERONE [Concomitant]
     Active Substance: MELPERONE
     Dosage: 0-0-0-2
     Route: 065
     Dates: start: 20190917, end: 20190919
  97. IRON [Concomitant]
     Active Substance: IRON
     Indication: Product used for unknown indication
     Dosage: PAUSED
     Route: 065
     Dates: end: 20190910
  98. PLAVIX [Concomitant]
     Active Substance: CLOPIDOGREL BISULFATE
     Indication: Product used for unknown indication
     Dosage: 1-0-0
     Route: 065
     Dates: start: 20190914, end: 20190919

REACTIONS (16)
  - Pallor [Unknown]
  - Anaemia [Unknown]
  - Chronic kidney disease [Unknown]
  - Mental impairment [Unknown]
  - Anxiety disorder [Unknown]
  - Stress [Unknown]
  - Sleep disorder [Unknown]
  - Depression [Unknown]
  - Impaired quality of life [Unknown]
  - Dyspnoea [Not Recovered/Not Resolved]
  - Hyperhidrosis [Unknown]
  - Rectal polyp [Unknown]
  - Nightmare [Unknown]
  - Restlessness [Unknown]
  - Nervousness [Unknown]
  - Fatigue [Unknown]
